FAERS Safety Report 12379843 (Version 1)
Quarter: 2016Q2

REPORT INFORMATION
  Report Type: Spontaneous
  Country: US (occurrence: None)
  Receive Date: 20160516
  Receipt Date: 20160516
  Transmission Date: 20160815
  Serious: No
  Sender: FDA-Public Use
  Company Number: None

PATIENT
  Age: 53 Year
  Sex: Male
  Weight: 96.4 kg

DRUGS (1)
  1. DABIGATRAN [Suspect]
     Active Substance: DABIGATRAN
     Dosage: MG BID PO
     Route: 048
     Dates: start: 20160205

REACTIONS (3)
  - Peripheral ischaemia [None]
  - Raynaud^s phenomenon [None]
  - Rash [None]

NARRATIVE: CASE EVENT DATE: 20160205
